FAERS Safety Report 10284506 (Version 1)
Quarter: 2014Q3

REPORT INFORMATION
  Report Type: Spontaneous
  Country: ES (occurrence: ES)
  Receive Date: 20140708
  Receipt Date: 20140708
  Transmission Date: 20150326
  Serious: Yes (Death)
  Sender: FDA-Public Use
  Company Number: ES-MYLANLABS-2014S1015580

PATIENT
  Age: 37 Year
  Sex: Female

DRUGS (3)
  1. BACLOFEN. [Suspect]
     Active Substance: BACLOFEN
     Indication: MUSCLE SPASTICITY
     Route: 037
  2. LEVOTHYROXINE SODIUM. [Concomitant]
     Active Substance: LEVOTHYROXINE SODIUM
     Route: 065
  3. INTERFERON BETA NOS [Concomitant]
     Active Substance: INTERFERON BETA
     Route: 065

REACTIONS (6)
  - Muscle spasticity [Fatal]
  - Depressed level of consciousness [Fatal]
  - Drug withdrawal syndrome [Fatal]
  - Tachycardia [Fatal]
  - Pyrexia [Fatal]
  - Tachypnoea [Fatal]
